FAERS Safety Report 19800843 (Version 1)
Quarter: 2021Q3

REPORT INFORMATION
  Report Type: Spontaneous
  Country: US (occurrence: US)
  Receive Date: 20210907
  Receipt Date: 20210907
  Transmission Date: 20211014
  Serious: Yes (Other)
  Sender: FDA-Public Use
  Company Number: US-AMGEN-USASP2021134303

PATIENT

DRUGS (3)
  1. CALCIUM [Concomitant]
     Active Substance: CALCIUM
  2. PROLIA [Suspect]
     Active Substance: DENOSUMAB
     Indication: BREAST CANCER
     Dosage: 60 MILLIGRAM
     Route: 065
  3. VITAMIN D [COLECALCIFEROL] [Concomitant]
     Active Substance: CHOLECALCIFEROL

REACTIONS (10)
  - Fall [Unknown]
  - Thoracic vertebral fracture [Unknown]
  - Lumbar vertebral fracture [Unknown]
  - Traumatic fracture [Unknown]
  - Intentional product misuse [Unknown]
  - Spinal fracture [Unknown]
  - Tooth disorder [Unknown]
  - Rebound effect [Unknown]
  - Inappropriate schedule of product administration [Unknown]
  - Appendicitis [Unknown]

NARRATIVE: CASE EVENT DATE: 2019
